FAERS Safety Report 5716792-5 (Version None)
Quarter: 2008Q2

REPORT INFORMATION
  Report Type: 
  Country: None (occurrence: None)
  Receive Date: 20080424
  Receipt Date: 20070911
  Transmission Date: 20081010
  Serious: No
  Sender: FDA-Public Use
  Company Number: US-BAYER-200712128BWH

PATIENT
  Sex: Male

DRUGS (8)
  1. LEVITRA [Suspect]
     Indication: ERECTILE DYSFUNCTION
     Dosage: TOTAL DAILY DOSE: 10 MG  UNIT DOSE: 20 MG
     Route: 048
     Dates: start: 20070101
  2. LEVITRA [Suspect]
     Dosage: TOTAL DAILY DOSE: 20 MG  UNIT DOSE: 20 MG
     Route: 048
     Dates: start: 20070101
  3. METOPROLOL TARTRATE [Concomitant]
  4. QUININE [Concomitant]
  5. RANITIDINE [Concomitant]
  6. SAINT JOSEPH'S ASPIRIN [Concomitant]
  7. SIMVASTATIN [Concomitant]
  8. CALCIUM SUPPLEMENT [Concomitant]

REACTIONS (2)
  - ERECTILE DYSFUNCTION [None]
  - POLLAKIURIA [None]
